FAERS Safety Report 11445487 (Version 1)
Quarter: 2015Q3

REPORT INFORMATION
  Report Type: Spontaneous
  Country: US (occurrence: None)
  Receive Date: 20150826
  Receipt Date: 20150826
  Transmission Date: 20151125
  Serious: Yes (Other)
  Sender: FDA-Public Use
  Company Number: PHEH2015US006645

PATIENT
  Age: 48 Year

DRUGS (1)
  1. SANDOSTATIN LAR DEPOT [Suspect]
     Active Substance: OCTREOTIDE ACETATE
     Indication: CARCINOID SYNDROME
     Route: 030

REACTIONS (2)
  - Pancreatitis [None]
  - Lipase increased [None]

NARRATIVE: CASE EVENT DATE: 20150330
